FAERS Safety Report 7978348-3 (Version None)
Quarter: 2011Q4

REPORT INFORMATION
  Report Type: 
  Country: None (occurrence: None)
  Receive Date: 20111214
  Receipt Date: 20111212
  Transmission Date: 20120403
  Serious: Yes (Hospitalization, Other)
  Sender: FDA-Public Use
  Company Number: US-PFIZER INC-2011246862

PATIENT

DRUGS (1)
  1. DEPO-TESTOSTERONE [Suspect]
     Dosage: UNK

REACTIONS (5)
  - CELLULITIS [None]
  - SWELLING [None]
  - ABSCESS [None]
  - ERYTHEMA [None]
  - FEELING HOT [None]
